FAERS Safety Report 18874721 (Version 2)
Quarter: 2021Q1

REPORT INFORMATION
  Report Type: Spontaneous
  Country: AU (occurrence: AU)
  Receive Date: 20210210
  Receipt Date: 20210312
  Transmission Date: 20210420
  Serious: Yes (Other)
  Sender: FDA-Public Use
  Company Number: AU-BAUSCH-BL-2021-004473

PATIENT
  Age: 14 Year
  Sex: Male

DRUGS (13)
  1. TACROLIMUS. [Suspect]
     Active Substance: TACROLIMUS
     Dosage: AIM: 10?12 MCG/L
     Route: 048
     Dates: start: 2016, end: 2017
  2. PREDNISOLONE. [Suspect]
     Active Substance: PREDNISOLONE
     Route: 048
     Dates: start: 2017, end: 2017
  3. TACROLIMUS. [Suspect]
     Active Substance: TACROLIMUS
     Dosage: DOSE REDUCED?AIM: 10?12 MCG/L
     Route: 048
     Dates: start: 2015, end: 2016
  4. PREDNISOLONE. [Suspect]
     Active Substance: PREDNISOLONE
     Indication: LUNG TRANSPLANT
     Route: 048
     Dates: start: 2015, end: 2016
  5. TACROLIMUS. [Suspect]
     Active Substance: TACROLIMUS
     Dosage: AIM: 5 MCG/L
     Route: 048
     Dates: start: 2017, end: 2018
  6. TACROLIMUS. [Suspect]
     Active Substance: TACROLIMUS
     Indication: LUNG TRANSPLANT
     Dosage: AIM: 10?12 MCG/L
     Route: 048
     Dates: start: 2015, end: 2016
  7. PREDNISOLONE. [Suspect]
     Active Substance: PREDNISOLONE
     Dosage: INTERVAL: 2 DAYS
     Route: 048
     Dates: start: 2018, end: 2018
  8. TACROLIMUS. [Suspect]
     Active Substance: TACROLIMUS
     Dosage: 5?8 MCG/L
     Route: 048
     Dates: start: 2017, end: 2017
  9. BASILIXIMAB [Concomitant]
     Active Substance: BASILIXIMAB
     Indication: LUNG TRANSPLANT
     Dates: start: 2015
  10. MYCOPHENOLATE MOFETIL. [Suspect]
     Active Substance: MYCOPHENOLATE MOFETIL
     Indication: LUNG TRANSPLANT
     Route: 065
     Dates: start: 2015, end: 2015
  11. AMIKACIN. [Concomitant]
     Active Substance: AMIKACIN
     Indication: BRONCHOALVEOLAR LAVAGE
  12. PREDNISOLONE. [Suspect]
     Active Substance: PREDNISOLONE
     Route: 048
     Dates: start: 2016, end: 2017
  13. TACROLIMUS. [Suspect]
     Active Substance: TACROLIMUS
     Dosage: AIM: 10?12 MCG/L
     Route: 048
     Dates: start: 2016, end: 2016

REACTIONS (3)
  - Soft tissue infection [Recovered/Resolved]
  - Mycobacterium abscessus infection [Unknown]
  - Pneumonia [Unknown]

NARRATIVE: CASE EVENT DATE: 2015
